FAERS Safety Report 12661388 (Version 2)
Quarter: 2016Q3

REPORT INFORMATION
  Report Type: Spontaneous
  Country: US (occurrence: US)
  Receive Date: 20160817
  Receipt Date: 20160901
  Transmission Date: 20161109
  Serious: No
  Sender: FDA-Public Use
  Company Number: US-RELYPSA-RLY2016000662

PATIENT
  Age: 67 Year
  Sex: Male

DRUGS (11)
  1. VITAMIN B12 [Concomitant]
     Active Substance: CYANOCOBALAMIN
  2. CARVEDILOL. [Concomitant]
     Active Substance: CARVEDILOL
  3. MULTIVITAMIN AND MINERAL [Concomitant]
  4. ATORVASTATIN [Concomitant]
     Active Substance: ATORVASTATIN
  5. GLIPIZIDE. [Concomitant]
     Active Substance: GLIPIZIDE
  6. FUROSEMIDE. [Concomitant]
     Active Substance: FUROSEMIDE
  7. IRON [Concomitant]
     Active Substance: IRON
  8. VELTASSA [Suspect]
     Active Substance: PATIROMER
     Indication: HYPERKALAEMIA
     Dosage: 8.4 G, Q.D.
     Route: 048
     Dates: start: 20160507, end: 201606
  9. OMEPRAZOLE. [Concomitant]
     Active Substance: OMEPRAZOLE
  10. ASPIRIN                            /00002701/ [Concomitant]
     Active Substance: ASPIRIN
  11. CALCIUM [Concomitant]
     Active Substance: CALCIUM

REACTIONS (2)
  - Bowel movement irregularity [Unknown]
  - Constipation [Not Recovered/Not Resolved]

NARRATIVE: CASE EVENT DATE: 201606
